FAERS Safety Report 4795884-1 (Version None)
Quarter: 2005Q4

REPORT INFORMATION
  Report Type: 
  Country: None (occurrence: None)
  Receive Date: 20051012
  Receipt Date: 20051007
  Transmission Date: 20060501
  Serious: Yes (Life-Threatening, Hospitalization, Other)
  Sender: FDA-Public Use
  Company Number: US-MERCK-0510USA04892

PATIENT
  Age: 75 Year
  Sex: Female

DRUGS (4)
  1. ZOCOR [Suspect]
     Indication: HYPERLIPIDAEMIA
     Route: 048
     Dates: end: 20050101
  2. ZOCOR [Suspect]
     Indication: SILENT MYOCARDIAL INFARCTION
     Route: 048
     Dates: end: 20050101
  3. COZAAR [Concomitant]
     Route: 048
  4. LOPRESSOR [Concomitant]
     Route: 065

REACTIONS (1)
  - PANCREATIC CARCINOMA [None]
